FAERS Safety Report 22614487 (Version 1)
Quarter: 2023Q2

REPORT INFORMATION
  Report Type: Spontaneous
  Country: US (occurrence: US)
  Receive Date: 20230619
  Receipt Date: 20230619
  Transmission Date: 20230722
  Serious: Yes (Hospitalization)
  Sender: FDA-Public Use
  Company Number: US-PROCTER_AND_GAMBLE-PH23005460

PATIENT
  Age: 12 Year
  Sex: Female

DRUGS (3)
  1. DIPHENHYDRAMINE HYDROCHLORIDE [Suspect]
     Active Substance: DIPHENHYDRAMINE HYDROCHLORIDE
     Indication: Rhinitis allergic
     Dosage: UNK, AS NEEDED
  2. OXYBUTYNIN [Suspect]
     Active Substance: OXYBUTYNIN
     Indication: Enuresis
     Dosage: UNK, AS NEEDED
  3. CETIRIZINE [Suspect]
     Active Substance: CETIRIZINE HYDROCHLORIDE
     Indication: Rhinitis allergic
     Dosage: UNK, AS NEEDED

REACTIONS (10)
  - Anticholinergic syndrome [Recovering/Resolving]
  - Sinus tachycardia [Recovering/Resolving]
  - Hallucinations, mixed [Recovering/Resolving]
  - Headache [Recovering/Resolving]
  - Confusional state [Recovering/Resolving]
  - Vision blurred [Recovering/Resolving]
  - Dry mouth [Recovering/Resolving]
  - Vomiting [Recovering/Resolving]
  - Drug interaction [Recovering/Resolving]
  - Disorientation [Recovering/Resolving]
